FAERS Safety Report 19255690 (Version 1)
Quarter: 2021Q2

REPORT INFORMATION
  Report Type: Spontaneous
  Country: NL (occurrence: NL)
  Receive Date: 20210514
  Receipt Date: 20210514
  Transmission Date: 20210717
  Serious: Yes (Other)
  Sender: FDA-Public Use
  Company Number: NL-AMGEN-NLDNI2021071623

PATIENT
  Age: 77 Year
  Sex: Male

DRUGS (2)
  1. PAMORELIN [Suspect]
     Active Substance: TRIPTORELIN PAMOATE
     Indication: PROSTATE CANCER METASTATIC
     Dosage: 22.5 MILLIGRAM
     Route: 030
     Dates: start: 20190125
  2. XGEVA [Suspect]
     Active Substance: DENOSUMAB
     Indication: PRODUCT USED FOR UNKNOWN INDICATION
     Dosage: UNK
     Route: 065

REACTIONS (3)
  - Osteonecrosis of jaw [Unknown]
  - Drug interaction [Recovered/Resolved with Sequelae]
  - Post procedural complication [Not Recovered/Not Resolved]
